FAERS Safety Report 5310643-9 (Version None)
Quarter: 2007Q1

REPORT INFORMATION
  Report Type: 
  Country: None (occurrence: None)
  Receive Date: 20070201
  Receipt Date: 20061002
  Transmission Date: 20070707
  Serious: No
  Sender: FDA-Public Use
  Company Number: 257977

PATIENT
  Age: 64 Year
  Sex: Female
  Weight: 122.4 kg

DRUGS (3)
  1. LEVEMIR [Suspect]
     Indication: INSULIN-REQUIRING TYPE II DIABETES MELLITUS
     Dosage: 16 IU, QD H.S., SUBCUTANEOUS
     Route: 058
     Dates: start: 20060801
  2. ACTOS [Concomitant]
  3. GLIPIZIDE [Concomitant]

REACTIONS (3)
  - ACNE [None]
  - BLOOD GLUCOSE INCREASED [None]
  - PRURITUS [None]
